FAERS Safety Report 7058500-4 (Version None)
Quarter: 2010Q4

REPORT INFORMATION
  Report Type: 
  Country: None (occurrence: None)
  Receive Date: 20101021
  Receipt Date: 20101021
  Transmission Date: 20110411
  Serious: Yes (Disabling)
  Sender: FDA-Public Use
  Company Number: None

PATIENT
  Sex: Female
  Weight: 54.5 kg

DRUGS (1)
  1. PROZAC (FLUOXETINE) 20-80MG (VARIED OVER TIME PERIOD) LILLY [Suspect]
     Indication: ANXIETY
     Dosage: 20-80MG (VARIED OVER TIME PERIOD) DAILY ORAL
     Route: 048
     Dates: start: 19950601

REACTIONS (6)
  - ANHEDONIA [None]
  - FEMALE ORGASMIC DISORDER [None]
  - HEPATIC ENZYME INCREASED [None]
  - HYPOAESTHESIA [None]
  - LOSS OF LIBIDO [None]
  - SEXUAL DYSFUNCTION [None]
